FAERS Safety Report 10094391 (Version 1)
Quarter: 2014Q2

REPORT INFORMATION
  Report Type: Spontaneous
  Country: US (occurrence: None)
  Receive Date: 20140421
  Receipt Date: 20140421
  Transmission Date: 20141212
  Serious: No
  Sender: FDA-Public Use
  Company Number: None

PATIENT
  Age: 59 Year
  Sex: Male
  Weight: 77.11 kg

DRUGS (1)
  1. VIAGRA 100 MG PFIZER [Suspect]
     Indication: ERECTILE DYSFUNCTION
     Dosage: 1/2 PILL  AS NEEDED  TAKEN BY MOUTH
     Route: 048

REACTIONS (2)
  - Abnormal dreams [None]
  - Fatigue [None]
